FAERS Safety Report 15676961 (Version 1)
Quarter: 2018Q4

REPORT INFORMATION
  Report Type: Spontaneous
  Country: JP (occurrence: JP)
  Receive Date: 20181130
  Receipt Date: 20181130
  Transmission Date: 20190205
  Serious: Yes (Hospitalization)
  Sender: FDA-Public Use
  Company Number: JP-BAYER-2018-219431

PATIENT
  Age: 68 Year
  Sex: Female
  Weight: 45 kg

DRUGS (5)
  1. STIVARGA [Suspect]
     Active Substance: REGORAFENIB
     Indication: COLON CANCER
     Dosage: 160 MG, QD
     Route: 048
     Dates: start: 20180419, end: 20180711
  2. MAGMITT [Concomitant]
     Active Substance: MAGNESIUM OXIDE
  3. AMITIZA [Concomitant]
     Active Substance: LUBIPROSTONE
  4. POLAPREZINC [Concomitant]
     Active Substance: POLAPREZINC
  5. PICOSULFATE NA [Concomitant]
     Active Substance: SODIUM PICOSULFATE

REACTIONS (5)
  - Bile duct stenosis [None]
  - Hepatic enzyme increased [Unknown]
  - Jaundice [None]
  - Metastases to biliary tract [None]
  - Drug-induced liver injury [None]

NARRATIVE: CASE EVENT DATE: 20180807
